FAERS Safety Report 5319272-4 (Version None)
Quarter: 2007Q2

REPORT INFORMATION
  Report Type: 
  Country: None (occurrence: None)
  Receive Date: 20070508
  Receipt Date: 20070426
  Transmission Date: 20071010
  Serious: Yes (Other)
  Sender: FDA-Public Use
  Company Number: US-PFIZER INC-2007034075

PATIENT
  Age: 57 Year
  Sex: Male

DRUGS (7)
  1. LITHIUM CARBONATE [Suspect]
     Indication: DEPRESSION
     Dosage: DAILY DOSE:600MG
  2. CANNABIS [Suspect]
  3. ALCOHOL [Suspect]
  4. QUETIAPINE FUMARATE [Concomitant]
  5. PAROXETINE [Concomitant]
  6. VALPROIC ACID [Concomitant]
  7. PROPRANOLOL [Concomitant]

REACTIONS (3)
  - CEREBELLAR SYNDROME [None]
  - OVERDOSE [None]
  - THERAPEUTIC AGENT TOXICITY [None]
